FAERS Safety Report 5065518-X (Version None)
Quarter: 2006Q3

REPORT INFORMATION
  Report Type: 
  Country: None (occurrence: None)
  Receive Date: 20060731
  Receipt Date: 20060718
  Transmission Date: 20061208
  Serious: Yes (Other)
  Sender: FDA-Public Use
  Company Number: PHEH2006US09237

PATIENT
  Sex: Female

DRUGS (1)
  1. SANDOSTATIN [Suspect]
     Indication: GASTROINTESTINAL HAEMORRHAGE
     Dosage: 25 MCG, ONCE/SINGLE
     Dates: start: 20060718, end: 20060718

REACTIONS (2)
  - INFUSION SITE DISCOLOURATION [None]
  - INFUSION SITE REACTION [None]
